FAERS Safety Report 16971424 (Version 1)
Quarter: 2019Q4

REPORT INFORMATION
  Report Type: Spontaneous
  Country: US (occurrence: US)
  Receive Date: 20191028
  Receipt Date: 20191028
  Transmission Date: 20200122
  Serious: Yes (Life-Threatening)
  Sender: FDA-Public Use
  Company Number: None

PATIENT
  Age: 38 Year
  Sex: Female
  Weight: 78.75 kg

DRUGS (3)
  1. CENTRUM MULTIVITAMIN [Concomitant]
  2. PHENTERMINE HCL [Suspect]
     Active Substance: PHENTERMINE HYDROCHLORIDE
     Indication: OVERWEIGHT
     Dosage: ?          QUANTITY:1 TABLET(S);?
     Route: 048
     Dates: start: 20190726, end: 20191025
  3. LEVOTHYROXINE. [Concomitant]
     Active Substance: LEVOTHYROXINE

REACTIONS (3)
  - Palpitations [None]
  - Pulse absent [None]
  - Loss of consciousness [None]

NARRATIVE: CASE EVENT DATE: 20191025
